FAERS Safety Report 5523216-X (Version None)
Quarter: 2007Q4

REPORT INFORMATION
  Report Type: 
  Country: None (occurrence: None)
  Receive Date: 20071116
  Receipt Date: 20071116
  Transmission Date: 20080405
  Serious: Yes (Hospitalization)
  Sender: FDA-Public Use
  Company Number: None

PATIENT
  Sex: Female
  Weight: 111 kg

DRUGS (7)
  1. ELSPAR [Suspect]
     Dosage: 38042 UNIT
     Dates: end: 20071109
  2. VINCRISTINE SULFATE [Suspect]
     Dosage: 2 MG
     Dates: end: 20071105
  3. BACTRIM DS [Suspect]
     Dosage: 9
     Dates: end: 20071109
  4. CYCLOPHOSPHAMIDE [Suspect]
     Dosage: 2508 MG
     Dates: end: 20071029
  5. DAUNORUBICIN HCL [Suspect]
     Dosage: 501 MG
     Dates: end: 20071031
  6. DEXAMETHASONE TAB [Suspect]
     Dosage: 12 MG
     Dates: end: 20071104
  7. G-CSF (FILGRASTIM, AMGEN) [Suspect]
     Dosage: 5280 MG
     Dates: end: 20071112

REACTIONS (10)
  - ABASIA [None]
  - ATRIAL FIBRILLATION [None]
  - BACTERIAL INFECTION [None]
  - BLOOD CULTURE POSITIVE [None]
  - DIARRHOEA [None]
  - HYPOKALAEMIA [None]
  - HYPOTENSION [None]
  - LETHARGY [None]
  - NEUTROPENIA [None]
  - SUPRAVENTRICULAR TACHYCARDIA [None]
